FAERS Safety Report 17895897 (Version 3)
Quarter: 2020Q3

REPORT INFORMATION
  Report Type: Spontaneous
  Country: US (occurrence: US)
  Receive Date: 20200615
  Receipt Date: 20200731
  Transmission Date: 20201103
  Serious: No
  Sender: FDA-Public Use
  Company Number: US-JNJFOC-20200617412

PATIENT

DRUGS (4)
  1. RISPERDAL CONSTA [Suspect]
     Active Substance: RISPERIDONE
  2. RISPERDAL CONSTA [Suspect]
     Active Substance: RISPERIDONE
  3. RISPERDAL CONSTA [Suspect]
     Active Substance: RISPERIDONE
     Indication: PRODUCT USED FOR UNKNOWN INDICATION
     Dosage: KIT
     Route: 030
  4. RISPERDAL CONSTA [Suspect]
     Active Substance: RISPERIDONE

REACTIONS (3)
  - Needle issue [Unknown]
  - Underdose [Unknown]
  - Injection site extravasation [Unknown]
